FAERS Safety Report 7525791-2 (Version None)
Quarter: 2011Q2

REPORT INFORMATION
  Report Type: 
  Country: None (occurrence: None)
  Receive Date: 20110606
  Receipt Date: 20110322
  Transmission Date: 20111010
  Serious: No
  Sender: FDA-Public Use
  Company Number: A0912291A

PATIENT
  Age: 15 Year
  Sex: Female
  Weight: 59.1 kg

DRUGS (2)
  1. IBUPROFEN [Concomitant]
  2. LAMICTAL [Suspect]
     Dosage: 25MG AT NIGHT
     Route: 048
     Dates: start: 20110118, end: 20110120

REACTIONS (1)
  - RASH [None]
